FAERS Safety Report 9276478 (Version 3)
Quarter: 2013Q3

REPORT INFORMATION
  Report Type: Spontaneous
  Country: US (occurrence: US)
  Receive Date: 20130507
  Receipt Date: 20130816
  Transmission Date: 20140515
  Serious: Yes (Hospitalization)
  Sender: FDA-Public Use
  Company Number: US-BRISTOL-MYERS SQUIBB COMPANY-18838243

PATIENT
  Age: 60 Year
  Sex: Male

DRUGS (19)
  1. COUMADIN [Suspect]
     Dosage: 1MG-22MAR13-UNK
     Route: 065
     Dates: start: 20130319
  2. PLAVIX [Suspect]
     Route: 065
     Dates: start: 20110401, end: 20130315
  3. ASPIRIN [Concomitant]
     Dosage: 2007-31MAR11:81MG:4YR?1APR11:324MG:1D?2APR11-13MAR13:714D-325MG
     Dates: start: 2007, end: 20110401
  4. TOPROL XL [Concomitant]
     Dosage: 5APR11-19APR11:100MG:15DAYS?20APR11-ONG:50MG
     Dates: start: 20110405
  5. VASOTEC [Concomitant]
     Dates: start: 20110402, end: 201105
  6. CRESTOR [Concomitant]
     Dates: start: 2008, end: 20110301
  7. ZOCOR [Concomitant]
     Dosage: 2MAR11-1APR11:20MG?2APR11-19APR11:80MG?20APR11-JUN2012:20MG
     Dates: start: 20110302, end: 201206
  8. METFORMIN [Concomitant]
     Dosage: DOSE:1000MG:BID
     Dates: start: 2007
  9. NITROGLYCERIN [Concomitant]
     Dates: start: 20110401
  10. NONI JUICE [Concomitant]
     Dosage: JUICE
     Dates: start: 2003
  11. HYDROCODONE [Concomitant]
     Dosage: 1DF:10/325MG
     Dates: start: 20110420, end: 201105
  12. LORAZEPAM [Concomitant]
     Dosage: 20APR11-MAY11:1MONTH?21MAR13-01JUN13:73DAYS
     Dates: start: 20110420, end: 20130601
  13. GLIPIZIDE [Concomitant]
     Dates: start: 20110719
  14. SIMVASTATIN [Concomitant]
     Dates: start: 201206
  15. LISINOPRIL [Concomitant]
     Dates: start: 20110928
  16. WARFARIN SODIUM [Concomitant]
     Dates: start: 20130322, end: 20130329
  17. HYDROMORPHONE [Concomitant]
     Dates: start: 20130321, end: 20130601
  18. DOCUSATE SODIUM [Concomitant]
     Dates: start: 20130321
  19. PANTOPRAZOLE [Concomitant]
     Dates: start: 20130327

REACTIONS (3)
  - Osteoarthritis [Recovered/Resolved]
  - Gastrointestinal haemorrhage [Recovered/Resolved]
  - Anaemia [Unknown]
